FAERS Safety Report 16645588 (Version 3)
Quarter: 2021Q1

REPORT INFORMATION
  Report Type: Report from Study
  Country: None (occurrence: US)
  Receive Date: 20190730
  Receipt Date: 20210105
  Transmission Date: 20210419
  Serious: Yes (Death, Hospitalization)
  Sender: FDA-Public Use
  Company Number: US-ABBVIE-19K-163-2871524-00

PATIENT
  Age: 75 Year
  Sex: Male

DRUGS (1)
  1. VENETOCLAX. [Suspect]
     Active Substance: VENETOCLAX
     Indication: MYELOID LEUKAEMIA
     Dosage: TAKE 2 TABLETS BY MOUTH EVERY DAY AS DIRECTED
     Route: 048

REACTIONS (2)
  - Death [Fatal]
  - Hospitalisation [Recovered/Resolved]

NARRATIVE: CASE EVENT DATE: 20190327
